FAERS Safety Report 24351741 (Version 1)
Quarter: 2024Q3

REPORT INFORMATION
  Report Type: Spontaneous
  Country: CN (occurrence: CN)
  Receive Date: 20240923
  Receipt Date: 20240923
  Transmission Date: 20241016
  Serious: No
  Sender: ROCHE
  Company Number: CN-ROCHE-3564153

PATIENT
  Age: 72 Year
  Sex: Female
  Weight: 54.0 kg

DRUGS (3)
  1. HERCEPTIN [Suspect]
     Active Substance: TRASTUZUMAB
     Indication: Endometrial cancer
     Route: 041
     Dates: start: 20240509, end: 20240509
  2. AVASTIN [Suspect]
     Active Substance: BEVACIZUMAB
     Indication: Endometrial cancer
     Dosage: TREATMENT ON 25 MAR 2024 AND 15 APR 2024
     Route: 065
     Dates: start: 20240325
  3. PACLITAXEL [Concomitant]
     Active Substance: PACLITAXEL
     Indication: Endometrial cancer
     Dosage: TREATMENT ON 25 MAR 2024 AND 15 APR 2024

REACTIONS (5)
  - Tremor [Recovering/Resolving]
  - Abdominal pain [Recovering/Resolving]
  - Pyrexia [Recovering/Resolving]
  - Abdominal wall pain [Unknown]
  - Off label use [Unknown]

NARRATIVE: CASE EVENT DATE: 20240509
